FAERS Safety Report 25468278 (Version 1)
Quarter: 2025Q2

REPORT INFORMATION
  Report Type: Spontaneous
  Country: FR (occurrence: None)
  Receive Date: 20250621
  Receipt Date: 20250621
  Transmission Date: 20250716
  Serious: Yes (Life-Threatening, Disabling)
  Sender: FDA-CTU
  Company Number: None

PATIENT
  Age: 60 Year
  Sex: Female
  Weight: 45 kg

DRUGS (2)
  1. LEXAPRO [Suspect]
     Active Substance: ESCITALOPRAM OXALATE
  2. UNSPECIFIED INGREDIENT [Concomitant]
     Active Substance: UNSPECIFIED INGREDIENT

REACTIONS (19)
  - Libido decreased [None]
  - Flat affect [None]
  - Feeling abnormal [None]
  - Emotional poverty [None]
  - Gastrooesophageal reflux disease [None]
  - Bruxism [None]
  - Temporomandibular pain and dysfunction syndrome [None]
  - Malocclusion [None]
  - Antidepressant discontinuation syndrome [None]
  - Anxiety [None]
  - Depression [None]
  - Suicidal ideation [None]
  - Gastrointestinal disorder [None]
  - Headache [None]
  - Electric shock sensation [None]
  - Vertigo [None]
  - Tinnitus [None]
  - Hyperacusis [None]
  - Emotional distress [None]
